FAERS Safety Report 23296654 (Version 1)
Quarter: 2023Q4

REPORT INFORMATION
  Report Type: Spontaneous
  Country: CN (occurrence: CN)
  Receive Date: 20231214
  Receipt Date: 20231214
  Transmission Date: 20240110
  Serious: Yes (Death, Hospitalization)
  Sender: FDA-Public Use
  Company Number: CN-NOVITIUMPHARMA-2023CNNVP02167

PATIENT
  Age: 60 Year
  Sex: Male

DRUGS (11)
  1. PYRAZINAMIDE [Suspect]
     Active Substance: PYRAZINAMIDE
     Indication: Tuberculosis
  2. ISONIAZID [Concomitant]
     Active Substance: ISONIAZID
     Indication: Tuberculosis
  3. RIFAMPIN [Concomitant]
     Active Substance: RIFAMPIN
     Indication: Tuberculosis
  4. ETHAMBUTOL [Concomitant]
     Active Substance: ETHAMBUTOL HYDROCHLORIDE
     Indication: Tuberculosis
  5. CARMUSTINE [Concomitant]
     Active Substance: CARMUSTINE
     Indication: Diffuse large B-cell lymphoma
  6. ETOPOSIDE [Concomitant]
     Active Substance: ETOPOSIDE
     Indication: Diffuse large B-cell lymphoma
  7. CYTARABINE [Concomitant]
     Active Substance: CYTARABINE
     Indication: Diffuse large B-cell lymphoma
  8. MELPHALAN [Concomitant]
     Active Substance: MELPHALAN
     Indication: Diffuse large B-cell lymphoma
  9. GLYCERIN [Concomitant]
     Active Substance: GLYCERIN
     Indication: Tuberculosis
  10. LEVOFLOXACIN [Concomitant]
     Active Substance: LEVOFLOXACIN
     Indication: Tuberculosis
  11. LINEZOLID [Concomitant]
     Active Substance: LINEZOLID
     Indication: Tuberculosis

REACTIONS (2)
  - Therapy non-responder [Fatal]
  - Intentional product misuse [Unknown]
